FAERS Safety Report 8756627 (Version 2)
Quarter: 2012Q4

REPORT INFORMATION
  Report Type: 
  Country: US (occurrence: US)
  Receive Date: 20120828
  Receipt Date: 20121217
  Transmission Date: 20130627
  Serious: Yes (Hospitalization)
  Sender: FDA-Public Use
  Company Number: US-BAYER-2012-087380

PATIENT
  Age: 20 Year
  Sex: Female
  Weight: 70.75 kg

DRUGS (11)
  1. YAZ [Suspect]
     Indication: PREMENSTRUAL DYSPHORIC DISORDER
     Dosage: UNK
     Dates: start: 200708, end: 201006
  2. YAZ [Suspect]
     Indication: PREMENSTRUAL SYNDROME
     Dosage: UNK
     Dates: start: 2012
  3. BEYAZ [Suspect]
     Dosage: UNK
     Dates: start: 201205, end: 201206
  4. BEYAZ [Suspect]
     Dosage: UNK
     Dates: start: 2012
  5. IBUPROFEN [Concomitant]
     Dosage: UNK
     Dates: start: 200606
  6. BACTRIM [Concomitant]
     Dosage: UNK
     Dates: start: 200606
  7. ASTHMA BREATHING TREATMENT [Concomitant]
     Dosage: UNK
     Dates: start: 201006
  8. DEMEROL [Concomitant]
     Dosage: UNK
     Dates: start: 201201
  9. CELEXA [Concomitant]
     Indication: ANXIETY
     Dosage: UNK
     Dates: start: 201204
  10. XANAX [Concomitant]
     Indication: ANXIETY
     Dosage: UNK
     Dates: start: 201204
  11. SPRINTEC [Concomitant]
     Dosage: UNK
     Dates: start: 201206

REACTIONS (7)
  - Cholecystectomy [None]
  - Injury [None]
  - Emotional distress [None]
  - Anxiety [None]
  - Psychological trauma [None]
  - Pain [None]
  - Abdominal pain upper [None]
